FAERS Safety Report 5171436-9 (Version None)
Quarter: 2006Q4

REPORT INFORMATION
  Report Type: 
  Country: None (occurrence: None)
  Receive Date: 20061208
  Receipt Date: 20061208
  Transmission Date: 20070319
  Serious: Yes (Death)
  Sender: FDA-Public Use
  Company Number: None

PATIENT
  Age: 65 Year
  Sex: Female
  Weight: 47.1741 kg

DRUGS (1)
  1. PRIALT [Suspect]
     Indication: PAIN
     Dosage: 1.99 MCG Q 24 H IT
     Route: 037
     Dates: start: 20061024, end: 20061115

REACTIONS (4)
  - APHAGIA [None]
  - CONFUSIONAL STATE [None]
  - LOSS OF CONSCIOUSNESS [None]
  - PARANOIA [None]
